FAERS Safety Report 4772720-0 (Version None)
Quarter: 2005Q3

REPORT INFORMATION
  Report Type: 
  Country: None (occurrence: None)
  Receive Date: 20050919
  Receipt Date: 20050310
  Transmission Date: 20060218
  Serious: Yes (Hospitalization)
  Sender: FDA-Public Use
  Company Number: 2005CG00529

PATIENT
  Age: 37 Year
  Sex: Male

DRUGS (2)
  1. CRESTOR [Suspect]
     Indication: DYSLIPIDAEMIA
     Route: 048
     Dates: start: 20040201, end: 20050201
  2. ANTIHYPERTENSIVE DRUG [Concomitant]
     Indication: HYPERTENSION

REACTIONS (3)
  - BLOOD CREATINE PHOSPHOKINASE INCREASED [None]
  - MUSCLE INJURY [None]
  - MYALGIA [None]
